FAERS Safety Report 9029012 (Version 1)
Quarter: 2013Q1

REPORT INFORMATION
  Report Type: Report from Study
  Country: CA (occurrence: CA)
  Receive Date: 20130122
  Receipt Date: 20130122
  Transmission Date: 20140127
  Serious: Yes (Death)
  Sender: FDA-Public Use
  Company Number: CA-ROCHE-1180569

PATIENT
  Sex: Female
  Weight: 54.4 kg

DRUGS (12)
  1. RITUXAN [Suspect]
     Indication: RHEUMATOID ARTHRITIS
     Route: 042
     Dates: start: 20110713, end: 20110727
  2. CORTISONE [Concomitant]
  3. TRAMACET [Concomitant]
  4. PREVACID [Concomitant]
  5. SULCRATE [Concomitant]
  6. COUMADIN [Concomitant]
  7. SULFATE FERREUX [Concomitant]
  8. CALCIUM [Concomitant]
  9. VITAMIN D [Concomitant]
  10. EFFEXOR [Concomitant]
  11. FENTANIL [Concomitant]
  12. XALATAN [Concomitant]

REACTIONS (1)
  - Death [Fatal]
